FAERS Safety Report 7488328-2 (Version None)
Quarter: 2011Q2

REPORT INFORMATION
  Report Type: 
  Country: None (occurrence: None)
  Receive Date: 20110518
  Receipt Date: 20110505
  Transmission Date: 20111010
  Serious: Yes (Hospitalization, Other)
  Sender: FDA-Public Use
  Company Number: ES-ELI_LILLY_AND_COMPANY-ES201105001546

PATIENT
  Age: 43 Year
  Sex: Male

DRUGS (6)
  1. RITONAVIR [Concomitant]
     Indication: HIV INFECTION
     Dosage: UNK UNK, UNKNOWN
     Route: 048
     Dates: start: 20080101
  2. ZYPREXA [Suspect]
     Indication: BORDERLINE PERSONALITY DISORDER
     Dosage: UNK UNK, UNKNOWN
     Route: 048
     Dates: start: 20110201
  3. TRUVADA [Concomitant]
     Indication: HIV INFECTION
     Dosage: UNK UNK, UNKNOWN
     Route: 048
     Dates: start: 20080101
  4. PROZAC [Suspect]
     Indication: BORDERLINE PERSONALITY DISORDER
     Dosage: UNK UNK, UNKNOWN
     Route: 048
     Dates: start: 20110201
  5. TELZIR [Concomitant]
     Indication: HIV INFECTION
     Dosage: UNK UNK, UNKNOWN
     Route: 048
     Dates: start: 20080101
  6. OXCARBAZEPINA [Concomitant]
     Indication: BORDERLINE PERSONALITY DISORDER
     Dosage: UNK UNK, UNKNOWN
     Route: 048
     Dates: start: 20110201

REACTIONS (2)
  - HYPONATRAEMIA [None]
  - OEDEMA [None]
